FAERS Safety Report 24151386 (Version 2)
Quarter: 2024Q3

REPORT INFORMATION
  Report Type: Spontaneous
  Country: US (occurrence: US)
  Receive Date: 20240730
  Receipt Date: 20240805
  Transmission Date: 20241017
  Serious: Yes (Hospitalization)
  Sender: MACLEODS
  Company Number: US-MACLEODS PHARMA-MAC2024048500

PATIENT

DRUGS (5)
  1. ATORVASTATIN [Suspect]
     Active Substance: ATORVASTATIN
     Indication: Product used for unknown indication
     Route: 065
  2. HERBALS\TRIBULUS TERRESTRIS [Suspect]
     Active Substance: HERBALS\TRIBULUS TERRESTRIS
     Indication: Asthenia
     Dosage: AS DIRECTED PER BOTTLE
     Route: 065
  3. HERBALS\TRIBULUS TERRESTRIS [Suspect]
     Active Substance: HERBALS\TRIBULUS TERRESTRIS
     Indication: Phytotherapy
  4. ASPIRIN [Concomitant]
     Active Substance: ASPIRIN
     Indication: Product used for unknown indication
     Route: 065
  5. METOPROLOL SUCCINATE [Concomitant]
     Active Substance: METOPROLOL SUCCINATE
     Indication: Product used for unknown indication
     Route: 065

REACTIONS (3)
  - Rhabdomyolysis [Recovered/Resolved]
  - Drug interaction [Recovered/Resolved]
  - Herbal interaction [Recovered/Resolved]
